FAERS Safety Report 17250374 (Version 1)
Quarter: 2020Q1

REPORT INFORMATION
  Report Type: Other
  Country: PT (occurrence: PT)
  Receive Date: 20200109
  Receipt Date: 20200109
  Transmission Date: 20200409
  Serious: Yes (Death, Other)
  Sender: FDA-Public Use
  Company Number: PT-ASPEN-GLO2019PT013851

PATIENT
  Age: 43 Year
  Sex: Male

DRUGS (1)
  1. DEXAMETHASONE. [Suspect]
     Active Substance: DEXAMETHASONE
     Indication: GENERAL SYMPTOM
     Dosage: UNKNOWN
     Route: 065

REACTIONS (3)
  - Laboratory test interference [Not Recovered/Not Resolved]
  - Disease progression [Fatal]
  - Demyelination [Not Recovered/Not Resolved]
